FAERS Safety Report 12844256 (Version 1)
Quarter: 2016Q4

REPORT INFORMATION
  Report Type: Spontaneous
  Country: US (occurrence: US)
  Receive Date: 20161013
  Receipt Date: 20161013
  Transmission Date: 20170207
  Serious: No
  Sender: FDA-Public Use
  Company Number: US-ROCHE-1771609

PATIENT
  Sex: Male

DRUGS (5)
  1. ZELBORAF [Suspect]
     Active Substance: VEMURAFENIB
     Indication: SMALL INTESTINE CARCINOMA
     Route: 048
     Dates: start: 20160520
  2. ALLEGRA ALLERGY [Concomitant]
     Active Substance: FEXOFENADINE HYDROCHLORIDE
  3. DIPROLENE AF [Concomitant]
     Active Substance: BETAMETHASONE DIPROPIONATE
  4. ASPIRIN. [Concomitant]
     Active Substance: ASPIRIN
  5. CIALIS [Concomitant]
     Active Substance: TADALAFIL

REACTIONS (2)
  - Dehydration [Unknown]
  - Vomiting [Unknown]
